APPROVED DRUG PRODUCT: RESERPINE
Active Ingredient: RESERPINE
Strength: 0.1MG
Dosage Form/Route: TABLET;ORAL
Application: A089020 | Product #001
Applicant: TEVA PHARMACEUTICALS USA INC
Approved: Mar 7, 1985 | RLD: No | RS: No | Type: DISCN